FAERS Safety Report 15386385 (Version 1)
Quarter: 2018Q3

REPORT INFORMATION
  Report Type: Spontaneous
  Country: US (occurrence: US)
  Receive Date: 20180914
  Receipt Date: 20180914
  Transmission Date: 20181010
  Serious: Yes (Death, Hospitalization, Other)
  Sender: FDA-Public Use
  Company Number: US-ALKEM LABORATORIES LIMITED-US-ALKEM-2018-07287

PATIENT
  Age: 29 Year
  Sex: Male

DRUGS (1)
  1. METFORMIN HYDROCHLORIDE. [Suspect]
     Active Substance: METFORMIN HYDROCHLORIDE
     Indication: SUICIDE ATTEMPT
     Dosage: 100 TABLETS OF 850 MG EACH
     Route: 065

REACTIONS (4)
  - Toxicity to various agents [Fatal]
  - Lactic acidosis [Fatal]
  - Overdose [Fatal]
  - Blood glucose increased [Fatal]
